FAERS Safety Report 7079087-6 (Version None)
Quarter: 2010Q4

REPORT INFORMATION
  Report Type: 
  Country: None (occurrence: None)
  Receive Date: 20101102
  Receipt Date: 20101018
  Transmission Date: 20110411
  Serious: Yes (Other)
  Sender: FDA-Public Use
  Company Number: US-AMGEN-USANI2010001352

PATIENT

DRUGS (3)
  1. ETANERCEPT [Suspect]
     Indication: RHEUMATOID ARTHRITIS
  2. HUMIRA [Suspect]
  3. METHOTREXATE SODIUM [Suspect]

REACTIONS (4)
  - DRUG INEFFECTIVE [None]
  - LIVER INJURY [None]
  - LYMPHOMA [None]
  - RETINAL HAEMORRHAGE [None]
